FAERS Safety Report 5898050-1 (Version None)
Quarter: 2008Q3

REPORT INFORMATION
  Report Type: 
  Country: None (occurrence: None)
  Receive Date: 20080905
  Receipt Date: 20071030
  Transmission Date: 20090109
  Serious: Yes (Hospitalization)
  Sender: FDA-Public Use
  Company Number: WAES 0710USA06988

PATIENT
  Age: 29 Year
  Sex: Male

DRUGS (1)
  1. MAXALT [Suspect]

REACTIONS (1)
  - CEREBROVASCULAR ACCIDENT [None]
